FAERS Safety Report 25797889 (Version 1)
Quarter: 2025Q3

REPORT INFORMATION
  Report Type: Spontaneous
  Country: US (occurrence: None)
  Receive Date: 20250912
  Receipt Date: 20250912
  Transmission Date: 20251021
  Serious: Yes (Other)
  Sender: FDA-CTU
  Company Number: None

PATIENT
  Age: 52 Year
  Sex: Female
  Weight: 51.26 kg

DRUGS (1)
  1. LAMOTRIGINE [Suspect]
     Active Substance: LAMOTRIGINE
     Dosage: 100 MG DAILY ORAL
     Route: 048
     Dates: start: 20221102, end: 20230806

REACTIONS (2)
  - Rash papular [None]
  - Immunosuppression [None]

NARRATIVE: CASE EVENT DATE: 20230806
